APPROVED DRUG PRODUCT: ERYTHROMYCIN ETHYLSUCCINATE
Active Ingredient: ERYTHROMYCIN ETHYLSUCCINATE
Strength: EQ 400MG BASE
Dosage Form/Route: TABLET;ORAL
Application: A062847 | Product #001
Applicant: AUROBINDO PHARMA USA INC
Approved: Sep 14, 1988 | RLD: No | RS: No | Type: DISCN